FAERS Safety Report 21924715 (Version 1)
Quarter: 2023Q1

REPORT INFORMATION
  Report Type: Report from Study
  Country: MX (occurrence: MX)
  Receive Date: 20230130
  Receipt Date: 20230130
  Transmission Date: 20230417
  Serious: Yes (Hospitalization, Other)
  Sender: FDA-Public Use
  Company Number: MX-002147023-NVSC2022MX291184

PATIENT
  Sex: Male
  Weight: 110 kg

DRUGS (2)
  1. ENTRESTO [Suspect]
     Active Substance: SACUBITRIL\VALSARTAN
     Indication: Cardiac disorder
     Dosage: 0.5 DOSAGE FORM, QD
     Route: 048
     Dates: start: 202108
  2. ENTRESTO [Suspect]
     Active Substance: SACUBITRIL\VALSARTAN
     Dosage: 0.5 DOSAGE FORM, BID (100MG, 0.5 IN THE MORNING AND 0.5 AT NIGHT)
     Route: 048

REACTIONS (3)
  - Cholecystitis infective [Unknown]
  - Prescribed underdose [Unknown]
  - Wrong technique in product usage process [Unknown]
